FAERS Safety Report 16203182 (Version 1)
Quarter: 2019Q2

REPORT INFORMATION
  Report Type: Spontaneous
  Country: FR (occurrence: FR)
  Receive Date: 20190416
  Receipt Date: 20190416
  Transmission Date: 20190711
  Serious: Yes (Hospitalization, Other)
  Sender: FDA-Public Use
  Company Number: FR-MYLANLABS-2019M1035498

PATIENT
  Age: 17 Year
  Sex: Female
  Weight: 59.8 kg

DRUGS (12)
  1. PRIMPERAN [Concomitant]
     Active Substance: METOCLOPRAMIDE HYDROCHLORIDE
     Indication: DRUG THERAPY
     Dosage: 10 MG,1X
     Dates: start: 20120723, end: 20120723
  2. ATARAX [Concomitant]
     Active Substance: HYDROXYZINE HYDROCHLORIDE
     Indication: PREMEDICATION
     Dosage: 100 MILLIGRAM, ONCE (100 MG,1X)
     Dates: start: 20120723, end: 20120723
  3. IBUPROFEN. [Suspect]
     Active Substance: IBUPROFEN
     Indication: SELF-MEDICATION
     Dosage: UNK
     Route: 048
     Dates: start: 20120724, end: 20120725
  4. MEFENAMIC ACID. [Suspect]
     Active Substance: MEFENAMIC ACID
     Indication: SELF-MEDICATION
     Dosage: UNK UNK,UNK
     Route: 048
     Dates: start: 20120724, end: 20120725
  5. MOPRAL                             /00661201/ [Suspect]
     Active Substance: OMEPRAZOLE SODIUM
     Indication: DRUG THERAPY
     Dosage: 20 MILLIGRAM, QD
     Route: 048
     Dates: start: 20120723, end: 20120723
  6. DIPRIVAN [Concomitant]
     Active Substance: PROPOFOL
     Indication: ANAESTHESIA
     Dosage: 200 MG,1X
     Dates: start: 20120723, end: 20120723
  7. CEFAZOLIN [Concomitant]
     Active Substance: CEFAZOLIN
     Indication: ANAESTHESIA
     Dosage: 2 G,UNK
     Dates: start: 20120723, end: 20120723
  8. MIDAZOLAM [Concomitant]
     Active Substance: MIDAZOLAM HYDROCHLORIDE
     Indication: ANAESTHESIA
     Dosage: 1.5 MG,1X
     Dates: start: 20120723, end: 20120723
  9. PROFENID [Suspect]
     Active Substance: KETOPROFEN
     Indication: DRUG THERAPY
     Dosage: 100 MILLIGRAM, BID
     Route: 048
     Dates: start: 20120723, end: 20120723
  10. SUFENTA [Concomitant]
     Active Substance: SUFENTANIL CITRATE
     Indication: ANAESTHESIA
     Dosage: DOSE: 20GAMMA
     Dates: start: 20120723, end: 20120723
  11. PROFENID [Suspect]
     Active Substance: KETOPROFEN
     Dosage: 50 MG,UNK
     Route: 048
     Dates: start: 20120724, end: 20120724
  12. PERFALGAN [Concomitant]
     Active Substance: ACETAMINOPHEN
     Indication: DRUG THERAPY
     Dosage: 1 G,BID
     Route: 042
     Dates: start: 20120723, end: 20120723

REACTIONS (2)
  - Acute kidney injury [Recovered/Resolved]
  - Tubulointerstitial nephritis [Recovered/Resolved]

NARRATIVE: CASE EVENT DATE: 20120725
